FAERS Safety Report 12248459 (Version 1)
Quarter: 2016Q2

REPORT INFORMATION
  Report Type: Spontaneous
  Country: US (occurrence: US)
  Receive Date: 20160408
  Receipt Date: 20160408
  Transmission Date: 20160815
  Serious: No
  Sender: FDA-Public Use
  Company Number: US-BAYER-2016-060252

PATIENT
  Age: 69 Year
  Sex: Female
  Weight: 65.76 kg

DRUGS (1)
  1. ALEVE [Suspect]
     Active Substance: NAPROXEN SODIUM
     Indication: PERICARDIAL EFFUSION
     Dosage: 1 DF, ONCE
     Route: 048
     Dates: start: 20160325, end: 20160325

REACTIONS (3)
  - Pruritus generalised [Not Recovered/Not Resolved]
  - Skin disorder [Not Recovered/Not Resolved]
  - Urticaria [None]

NARRATIVE: CASE EVENT DATE: 20160325
